FAERS Safety Report 14478703 (Version 3)
Quarter: 2019Q2

REPORT INFORMATION
  Report Type: Other
  Country: DE (occurrence: DE)
  Receive Date: 20180202
  Receipt Date: 20190628
  Transmission Date: 20190711
  Serious: No
  Sender: FDA-Public Use
  Company Number: DE-LUPIN PHARMACEUTICALS INC.-2017-06800

PATIENT
  Age: 44 Year
  Sex: Female

DRUGS (2)
  1. SIMVASTATIN. [Suspect]
     Active Substance: SIMVASTATIN
     Indication: HYPERCHOLESTEROLAEMIA
     Dosage: 20 MG, 40 MG UND 80 MG
     Route: 048
     Dates: start: 2014, end: 2014
  2. ATORVASTATIN [Suspect]
     Active Substance: ATORVASTATIN
     Indication: HYPERCHOLESTEROLAEMIA
     Dosage: UNK, 20 MG, 40 MG AND 80 MG
     Route: 048
     Dates: start: 2014, end: 201609

REACTIONS (4)
  - Myalgia [Not Recovered/Not Resolved]
  - Neurodermatitis [Recovered/Resolved]
  - Alopecia [Recovered/Resolved]
  - Arthralgia [Not Recovered/Not Resolved]
